FAERS Safety Report 5347402-7 (Version None)
Quarter: 2007Q2

REPORT INFORMATION
  Report Type: 
  Country: None (occurrence: None)
  Receive Date: 20070606
  Receipt Date: 20070529
  Transmission Date: 20071010
  Serious: Yes (Life-Threatening, Hospitalization)
  Sender: FDA-Public Use
  Company Number: US-ASTRAZENECA-2007UW08814

PATIENT
  Age: 90 Year
  Sex: Female
  Weight: 51.7 kg

DRUGS (2)
  1. SEROQUEL [Suspect]
     Indication: DEMENTIA
     Route: 048
     Dates: start: 20041201
  2. LASIX [Concomitant]

REACTIONS (5)
  - ACUTE RESPIRATORY FAILURE [None]
  - BRAIN DAMAGE [None]
  - CARDIAC DISORDER [None]
  - CHOKING [None]
  - PNEUMONIA [None]
